FAERS Safety Report 25089649 (Version 1)
Quarter: 2025Q1

REPORT INFORMATION
  Report Type: Spontaneous
  Country: US (occurrence: None)
  Receive Date: 20250317
  Receipt Date: 20250317
  Transmission Date: 20250409
  Serious: Yes (Hospitalization)
  Sender: FDA-CTU
  Company Number: None

PATIENT
  Age: 73 Year
  Sex: Male

DRUGS (1)
  1. RIVAROXABAN [Suspect]
     Active Substance: RIVAROXABAN
     Indication: Atrial fibrillation

REACTIONS (8)
  - Scrotal oedema [None]
  - Blood loss anaemia [None]
  - Heart failure with preserved ejection fraction [None]
  - Condition aggravated [None]
  - Gastrointestinal haemorrhage [None]
  - Haemorrhoids [None]
  - Diverticulum intestinal [None]
  - Gastritis erosive [None]

NARRATIVE: CASE EVENT DATE: 20250215
